FAERS Safety Report 18213198 (Version 2)
Quarter: 2020Q3

REPORT INFORMATION
  Report Type: Spontaneous
  Country: IN (occurrence: IN)
  Receive Date: 20200831
  Receipt Date: 20200910
  Transmission Date: 20201103
  Serious: Yes (Other)
  Sender: FDA-Public Use
  Company Number: IN-JNJFOC-20200830091

PATIENT
  Age: 18 Year
  Sex: Female

DRUGS (1)
  1. TOPAMAC [Suspect]
     Active Substance: TOPIRAMATE
     Indication: HEADACHE
     Route: 048

REACTIONS (2)
  - Cataract [Not Recovered/Not Resolved]
  - Angle closure glaucoma [Recovering/Resolving]
